FAERS Safety Report 11098620 (Version 3)
Quarter: 2016Q1

REPORT INFORMATION
  Report Type: Spontaneous
  Country: US (occurrence: US)
  Receive Date: 20150507
  Receipt Date: 20160205
  Transmission Date: 20160525
  Serious: No
  Sender: FDA-Public Use
  Company Number: US-AMGEN-USASP2015029885

PATIENT
  Age: 60 Year
  Sex: Male

DRUGS (9)
  1. NEUPOGEN [Suspect]
     Active Substance: FILGRASTIM
     Indication: LUNG NEOPLASM
  2. ARANESP [Suspect]
     Active Substance: DARBEPOETIN ALFA
     Indication: TRACHEAL NEOPLASM
     Dosage: UNK UNK, UNK
     Route: 065
  3. NEULASTA [Suspect]
     Active Substance: PEGFILGRASTIM
     Indication: BRONCHIAL NEOPLASM
  4. NEUPOGEN [Suspect]
     Active Substance: FILGRASTIM
     Indication: BRONCHIAL NEOPLASM
  5. NEULASTA [Suspect]
     Active Substance: PEGFILGRASTIM
     Indication: LUNG NEOPLASM
  6. NEULASTA [Suspect]
     Active Substance: PEGFILGRASTIM
     Indication: TRACHEAL NEOPLASM
     Dosage: UNK UNK, UNK
     Route: 065
  7. ARANESP [Suspect]
     Active Substance: DARBEPOETIN ALFA
     Indication: BRONCHIAL NEOPLASM
  8. NEUPOGEN [Suspect]
     Active Substance: FILGRASTIM
     Indication: TRACHEAL NEOPLASM
     Dosage: UNK, UNK
     Route: 065
  9. ARANESP [Suspect]
     Active Substance: DARBEPOETIN ALFA
     Indication: LUNG NEOPLASM

REACTIONS (1)
  - Off label use [Unknown]
